FAERS Safety Report 9678193 (Version 4)
Quarter: 2014Q1

REPORT INFORMATION
  Report Type: Report from Study
  Country: JP (occurrence: JP)
  Receive Date: 20131108
  Receipt Date: 20140131
  Transmission Date: 20141002
  Serious: Yes (Other)
  Sender: FDA-Public Use
  Company Number: JP-JNJFOC-20131100719

PATIENT
  Age: 72 Year
  Sex: Male
  Weight: 78 kg

DRUGS (7)
  1. STELARA [Suspect]
     Indication: PSORIASIS
     Route: 058
     Dates: start: 20130724
  2. STELARA [Suspect]
     Indication: PSORIASIS
     Route: 058
     Dates: start: 20130501, end: 20130501
  3. STELARA [Suspect]
     Indication: PSORIASIS
     Route: 058
     Dates: start: 20130206, end: 20130206
  4. STELARA [Suspect]
     Indication: PSORIASIS
     Route: 058
     Dates: start: 20121114, end: 20121114
  5. ANTEBATE [Concomitant]
     Indication: PSORIASIS
     Route: 061
     Dates: start: 20101013
  6. OXAROL [Concomitant]
     Indication: PSORIASIS
     Route: 061
     Dates: start: 20101013
  7. FULMETA [Concomitant]
     Indication: PSORIASIS
     Route: 061
     Dates: start: 20101013

REACTIONS (1)
  - Blood beta-D-glucan increased [Recovered/Resolved]
